FAERS Safety Report 8808743 (Version 4)
Quarter: 2013Q2

REPORT INFORMATION
  Report Type: Spontaneous
  Country: US (occurrence: US)
  Receive Date: 20120926
  Receipt Date: 20130619
  Transmission Date: 20140414
  Serious: Yes (Other)
  Sender: FDA-Public Use
  Company Number: US-JNJFOC-20120909841

PATIENT
  Age: 53 Year
  Sex: Male
  Weight: 83.9 kg

DRUGS (9)
  1. MOTRIN [Suspect]
     Indication: BACK PAIN
     Route: 048
  2. LYRICA [Suspect]
     Indication: INTERVERTEBRAL DISC PROTRUSION
     Route: 048
  3. LYRICA [Suspect]
     Indication: INTERVERTEBRAL DISC PROTRUSION
     Route: 048
  4. LYRICA [Suspect]
     Indication: FIBROMYALGIA
     Route: 048
  5. LYRICA [Suspect]
     Indication: FIBROMYALGIA
     Route: 048
  6. IBUPROFEN [Concomitant]
     Indication: PAIN
  7. MAXALT [Concomitant]
     Indication: MIGRAINE
     Route: 065
  8. BABY ASPIRIN [Concomitant]
     Route: 065
  9. ATENOLOL [Concomitant]
     Indication: MIGRAINE
     Route: 065

REACTIONS (8)
  - Pain [Not Recovered/Not Resolved]
  - Musculoskeletal pain [Not Recovered/Not Resolved]
  - Fall [Unknown]
  - Activities of daily living impaired [Not Recovered/Not Resolved]
  - Pain in extremity [Not Recovered/Not Resolved]
  - Feeling abnormal [Unknown]
  - Insomnia [Not Recovered/Not Resolved]
  - Abdominal discomfort [Unknown]
